FAERS Safety Report 4740707-X (Version None)
Quarter: 2005Q3

REPORT INFORMATION
  Report Type: 
  Country: None (occurrence: None)
  Receive Date: 20050810
  Receipt Date: 20050711
  Transmission Date: 20060218
  Serious: Yes (Disabling)
  Sender: FDA-Public Use
  Company Number: JP-GLAXOSMITHKLINE-B0387495A

PATIENT
  Age: 77 Year
  Sex: Male
  Weight: 47 kg

DRUGS (6)
  1. ZOVIRAX [Suspect]
     Indication: HERPES ZOSTER
     Route: 042
     Dates: start: 20050627, end: 20050701
  2. CALTAN [Concomitant]
     Dosage: 4.5G PER DAY
     Route: 048
     Dates: start: 19960119
  3. OPALMON [Concomitant]
     Indication: ATHEROSCLEROSIS OBLITERANS
     Dosage: 3TAB PER DAY
     Route: 048
     Dates: start: 19960119
  4. SERMION [Concomitant]
     Indication: CEREBRAL INFARCTION
     Dosage: 2UNIT PER DAY
     Route: 048
     Dates: start: 19960119
  5. DIOVAN [Concomitant]
     Indication: HYPERTENSION
     Dosage: 1TAB PER DAY
     Route: 048
     Dates: start: 19960119
  6. AMLODIN [Concomitant]
     Indication: HYPERTENSION
     Dosage: 15MG PER DAY
     Route: 048
     Dates: start: 19960119

REACTIONS (2)
  - ANOREXIA [None]
  - HALLUCINATION [None]
